FAERS Safety Report 14460298 (Version 1)
Quarter: 2018Q1

REPORT INFORMATION
  Report Type: Other
  Country: US (occurrence: US)
  Receive Date: 20180130
  Receipt Date: 20180130
  Transmission Date: 20180509
  Serious: No
  Sender: FDA-Public Use
  Company Number: US-ACORDA-ACO_139476_2017

PATIENT
  Age: 68 Year
  Sex: Female
  Weight: 65.76 kg

DRUGS (7)
  1. AMLODIPINE [Suspect]
     Active Substance: AMLODIPINE BESYLATE
     Indication: PRODUCT USED FOR UNKNOWN INDICATION
     Dosage: 5 MG, (1/2 TABLET) UNK
     Route: 065
  2. AMPYRA [Suspect]
     Active Substance: DALFAMPRIDINE
     Indication: MULTIPLE SCLEROSIS
     Dosage: 10 MG, BID
     Route: 048
     Dates: start: 20170509
  3. ESCITALOPRAM [Concomitant]
     Active Substance: ESCITALOPRAM OXALATE
     Indication: PRODUCT USED FOR UNKNOWN INDICATION
     Dosage: 10 MG, UNK
     Route: 065
  4. VALSARTAN. [Concomitant]
     Active Substance: VALSARTAN
     Indication: PRODUCT USED FOR UNKNOWN INDICATION
     Dosage: 80 MG, UNK
     Route: 065
  5. AMPYRA [Suspect]
     Active Substance: DALFAMPRIDINE
     Indication: GAIT DISTURBANCE
     Dosage: 10 MG, BID
     Route: 048
     Dates: start: 20170509
  6. AMANTADINE HCL [Concomitant]
     Active Substance: AMANTADINE HYDROCHLORIDE
     Indication: ANTIVIRAL TREATMENT
     Dosage: UNK
     Route: 065
  7. AMANTADINE HCL [Concomitant]
     Active Substance: AMANTADINE HYDROCHLORIDE
     Indication: ASTHENIA

REACTIONS (9)
  - Muscular weakness [Not Recovered/Not Resolved]
  - Humidity intolerance [Unknown]
  - Drug ineffective [Unknown]
  - Cough [Not Recovered/Not Resolved]
  - Diarrhoea [Recovering/Resolving]
  - Peripheral swelling [Not Recovered/Not Resolved]
  - Oropharyngeal pain [Not Recovered/Not Resolved]
  - Movement disorder [Not Recovered/Not Resolved]
  - Multiple sclerosis [Not Recovered/Not Resolved]

NARRATIVE: CASE EVENT DATE: 201706
